FAERS Safety Report 7083311-3 (Version None)
Quarter: 2010Q4

REPORT INFORMATION
  Report Type: 
  Country: None (occurrence: None)
  Receive Date: 20101104
  Receipt Date: 20101022
  Transmission Date: 20110411
  Serious: Yes (Other)
  Sender: FDA-Public Use
  Company Number: PHHY2010GR71436

PATIENT
  Age: 45 Year
  Sex: Male

DRUGS (2)
  1. EXJADE [Suspect]
     Dosage: UNK
     Route: 048
     Dates: start: 20101001
  2. CYCLOSPORINE [Concomitant]
     Dosage: UNK

REACTIONS (3)
  - ANAEMIA [None]
  - ASTHENIA [None]
  - HYPOMAGNESAEMIA [None]
